FAERS Safety Report 14879215 (Version 1)
Quarter: 2018Q2

REPORT INFORMATION
  Report Type: Spontaneous
  Country: GB (occurrence: GB)
  Receive Date: 20180511
  Receipt Date: 20180511
  Transmission Date: 20180711
  Serious: Yes (Other)
  Sender: FDA-Public Use
  Company Number: GB-TEVA-2018-GB-891835

PATIENT
  Age: 25 Year
  Sex: Female
  Weight: 79 kg

DRUGS (4)
  1. CILEST [Concomitant]
     Active Substance: ETHINYL ESTRADIOL\NORGESTIMATE
     Dosage: TAKE ONE AS DIRECTED
     Route: 065
     Dates: start: 20180209
  2. NITROFURANTOIN. [Concomitant]
     Active Substance: NITROFURANTOIN
     Dosage: 4 DOSAGE FORMS DAILY;
     Route: 065
     Dates: start: 20180223, end: 20180302
  3. ETHINYLESTRADIOL [Concomitant]
     Active Substance: ETHINYL ESTRADIOL
     Dosage: TAKE ONE AS DIRECTED
     Route: 065
     Dates: start: 20160201, end: 20180215
  4. TRIMETHOPRIM TABLETS 100 MG [Suspect]
     Active Substance: TRIMETHOPRIM
     Route: 048
     Dates: start: 20180303, end: 20180305

REACTIONS (2)
  - Swollen tongue [Recovering/Resolving]
  - Glossodynia [Unknown]

NARRATIVE: CASE EVENT DATE: 20180306
